FAERS Safety Report 8999401 (Version 1)
Quarter: 2013Q1

REPORT INFORMATION
  Report Type: Spontaneous
  Country: JP (occurrence: JP)
  Receive Date: 20130103
  Receipt Date: 20130103
  Transmission Date: 20140127
  Serious: Yes (Other)
  Sender: FDA-Public Use
  Company Number: JP-TEVA-378246ISR

PATIENT
  Age: 65 Year
  Sex: Female

DRUGS (1)
  1. CISPLATIN [Suspect]
     Indication: NASOPHARYNGEAL CANCER
     Dates: start: 200207

REACTIONS (5)
  - Leukopenia [Unknown]
  - Anaemia [Unknown]
  - Dysphagia [Unknown]
  - Pharyngitis [Unknown]
  - Dermatitis [Unknown]
